FAERS Safety Report 10159658 (Version 2)
Quarter: 2014Q2

REPORT INFORMATION
  Report Type: Spontaneous
  Country: US (occurrence: US)
  Receive Date: 20140508
  Receipt Date: 20140618
  Transmission Date: 20141212
  Serious: Yes (Hospitalization)
  Sender: FDA-Public Use
  Company Number: US-ELI_LILLY_AND_COMPANY-US201404009795

PATIENT
  Sex: Female

DRUGS (10)
  1. FORTEO [Suspect]
     Indication: FRACTURE
     Dosage: UNK, QD
     Route: 065
     Dates: start: 201305
  2. FORTEO [Suspect]
     Indication: SURGERY
     Dosage: UNK, QD
     Route: 065
     Dates: start: 201305
  3. HUMALOG [Concomitant]
     Indication: PRODUCT USED FOR UNKNOWN INDICATION
     Route: 065
  4. LANTUS [Concomitant]
     Indication: PRODUCT USED FOR UNKNOWN INDICATION
     Route: 065
  5. TRAZODONE [Concomitant]
     Indication: PRODUCT USED FOR UNKNOWN INDICATION
     Route: 065
  6. CALCIUM [Concomitant]
     Indication: PRODUCT USED FOR UNKNOWN INDICATION
     Route: 065
  7. VITAMIN D [Concomitant]
     Indication: PRODUCT USED FOR UNKNOWN INDICATION
     Route: 065
  8. MAGNESIUM [Concomitant]
     Indication: PRODUCT USED FOR UNKNOWN INDICATION
     Route: 065
  9. CARBIDOPA LEVODOPA [Concomitant]
     Indication: PRODUCT USED FOR UNKNOWN INDICATION
     Route: 065
  10. EXTRA STRENGHT TYLENOL PM [Concomitant]
     Indication: PROCEDURAL PAIN
     Dosage: 500 MG, EVERY 4 HRS
     Route: 065

REACTIONS (3)
  - Spinal fracture [Recovering/Resolving]
  - Delirium [Recovering/Resolving]
  - Off label use [Unknown]
